FAERS Safety Report 6819278-X (Version None)
Quarter: 2010Q3

REPORT INFORMATION
  Report Type: 
  Country: None (occurrence: None)
  Receive Date: 20100707
  Receipt Date: 20100623
  Transmission Date: 20110219
  Serious: Yes (Hospitalization)
  Sender: FDA-Public Use
  Company Number: US-ELI_LILLY_AND_COMPANY-US201006006975

PATIENT
  Sex: Female

DRUGS (11)
  1. FORTEO [Suspect]
     Indication: OSTEOPOROSIS
     Dosage: 20 UG, DAILY (1/D)
  2. VITAMIN D [Concomitant]
  3. CALCIUM CARBONATE [Concomitant]
  4. AVINZA [Concomitant]
  5. OXYCODONE HCL [Concomitant]
  6. PROTONIX [Concomitant]
  7. PHENERGAN [Concomitant]
  8. ELMIRON [Concomitant]
  9. FLEXERIL [Concomitant]
  10. KLONOPIN [Concomitant]
  11. LUNESTA [Concomitant]

REACTIONS (2)
  - IMPAIRED HEALING [None]
  - SPINAL FUSION SURGERY [None]
